FAERS Safety Report 14295794 (Version 4)
Quarter: 2018Q2

REPORT INFORMATION
  Report Type: Report from Study
  Country: None (occurrence: US)
  Receive Date: 20171218
  Receipt Date: 20180413
  Transmission Date: 20180711
  Serious: Yes (Hospitalization, Other)
  Sender: FDA-Public Use
  Company Number: US-ABBVIE-17K-163-2192309-00

PATIENT
  Age: 71 Year
  Sex: Female
  Weight: 55.84 kg

DRUGS (3)
  1. VITAMIN B12 [Concomitant]
     Active Substance: CYANOCOBALAMIN
     Indication: VITAMIN SUPPLEMENTATION
  2. HUMIRA [Suspect]
     Active Substance: ADALIMUMAB
     Indication: CROHN^S DISEASE
     Route: 058
     Dates: start: 20151215, end: 2016
  3. HUMIRA [Suspect]
     Active Substance: ADALIMUMAB
     Dosage: INCREASED DOSE
     Route: 058
     Dates: start: 2017

REACTIONS (7)
  - Apparent death [Recovering/Resolving]
  - Blood potassium decreased [Recovered/Resolved]
  - Mental impairment [Unknown]
  - Malnutrition [Recovering/Resolving]
  - Muscle spasms [Recovered/Resolved]
  - Weight decreased [Recovering/Resolving]
  - Confusional state [Recovering/Resolving]

NARRATIVE: CASE EVENT DATE: 2017
